FAERS Safety Report 4555124-5 (Version None)
Quarter: 2005Q1

REPORT INFORMATION
  Report Type: 
  Country: None (occurrence: None)
  Receive Date: 20041228
  Receipt Date: 20040701
  Transmission Date: 20050727
  Serious: Yes (Other)
  Sender: FDA-Public Use
  Company Number: PHEH2004US04805

PATIENT
  Age: 78 Year
  Sex: Female

DRUGS (6)
  1. AREDIA [Suspect]
     Indication: MULTIPLE MYELOMA
     Dosage: 90 MG, QMO
     Dates: start: 19950517, end: 20030825
  2. ZOMETA [Suspect]
     Indication: MULTIPLE MYELOMA
     Dates: start: 20011101, end: 20020501
  3. DECADRON [Concomitant]
  4. THALIDOMIDE (THALIDOMIDE) [Concomitant]
  5. MELPHALAN (MELPHALAN) [Concomitant]
  6. PREDNISONE [Concomitant]

REACTIONS (6)
  - ACTINOMYCOSIS [None]
  - ASEPTIC NECROSIS BONE [None]
  - IMPAIRED HEALING [None]
  - OSTEOMYELITIS [None]
  - SEQUESTRECTOMY [None]
  - TOOTH EXTRACTION [None]
